FAERS Safety Report 18581445 (Version 2)
Quarter: 2020Q4

REPORT INFORMATION
  Report Type: Report from Study
  Country: IT (occurrence: IT)
  Receive Date: 20201204
  Receipt Date: 20201215
  Transmission Date: 20210114
  Serious: Yes (Other)
  Sender: FDA-Public Use
  Company Number: IT-MYLANLABS-2020M1099398

PATIENT
  Age: 49 Year
  Sex: Female
  Weight: 50 kg

DRUGS (10)
  1. TRASTUZUMAB EMTANSINE [Suspect]
     Active Substance: ADO-TRASTUZUMAB EMTANSINE
     Indication: BREAST NEOPLASM
     Dosage: THE 9TH DRUG ADMINISTRATION SCHEDULED WAS NOT PERFORMED
     Route: 042
  2. TRASTUZUMAB EMTANSINE [Suspect]
     Active Substance: ADO-TRASTUZUMAB EMTANSINE
     Dosage: 08/09/2020 THE 9TH DRUG ADMINISTRATION SCHEDULED WAS NOT PERFORMED DUE TO THE DETECTION
     Route: 042
     Dates: start: 20200310, end: 20200922
  3. TRASTUZUMAB EMTANSINE [Suspect]
     Active Substance: ADO-TRASTUZUMAB EMTANSINE
     Dosage: 9TH ADMINISTRATION PERFORMED.
     Route: 042
     Dates: start: 20200922
  4. TRASTUZUMAB EMTANSINE [Suspect]
     Active Substance: ADO-TRASTUZUMAB EMTANSINE
     Dosage: 180 MILLIGRAM, Q21D
     Route: 042
     Dates: start: 20201001
  5. DEURSIL [Concomitant]
     Active Substance: URSODIOL
     Indication: HEPATOTOXICITY
     Dosage: ONGOING, 1 CAPSULE DAY
     Dates: start: 202008
  6. LEUPRORELIN [Concomitant]
     Active Substance: LEUPROLIDE ACETATE
     Dosage: DOSE- 1 FL (VIAL), ONGOING
     Route: 030
     Dates: start: 20190417
  7. TRASTUZUMAB. [Suspect]
     Active Substance: TRASTUZUMAB
     Indication: PRODUCT USED FOR UNKNOWN INDICATION
     Dosage: CURRENTLY THE 9TH ADMINISTRATION WAS PERFORMED AND THE 10TH HAS BEEN AT THE MOMENT NOT PERFORMED
     Route: 065
  8. EXEMESTANE. [Concomitant]
     Active Substance: EXEMESTANE
     Dosage: ONGOING, 1 CAPSULE DAY
     Dates: start: 201912
  9. LYRICA [Concomitant]
     Active Substance: PREGABALIN
     Indication: NEUROTOXICITY
     Dosage: DOSE: 1 CAPSULE DAY, ONGOING
     Dates: start: 201910
  10. REAPTAN [Concomitant]
     Active Substance: AMLODIPINE BESYLATE\PERINDOPRIL ARGININE
     Indication: HYPERTENSION
     Dosage: DOSE- 1 CAPSULE DAY, ONGOING

REACTIONS (4)
  - Dysplastic naevus [Unknown]
  - Spider naevus [Unknown]
  - Hyperbilirubinaemia [Not Recovered/Not Resolved]
  - Rash [Unknown]

NARRATIVE: CASE EVENT DATE: 202009
